FAERS Safety Report 20764108 (Version 9)
Quarter: 2024Q1

REPORT INFORMATION
  Report Type: Spontaneous
  Country: US (occurrence: US)
  Receive Date: 20220428
  Receipt Date: 20240108
  Transmission Date: 20240410
  Serious: No
  Sender: FDA-Public Use
  Company Number: US-PFIZER INC-202200356046

PATIENT
  Age: 86 Year
  Sex: Female

DRUGS (1)
  1. IBRANCE [Suspect]
     Active Substance: PALBOCICLIB
     Indication: Breast cancer female
     Dosage: 7 DAYS ON AND 7 DAYS OFF, REPEAT CYCLE
     Route: 048

REACTIONS (3)
  - Memory impairment [Unknown]
  - Off label use [Unknown]
  - Product use issue [Unknown]
